APPROVED DRUG PRODUCT: MEPRO-ASPIRIN
Active Ingredient: ASPIRIN; MEPROBAMATE
Strength: 325MG;200MG
Dosage Form/Route: TABLET;ORAL
Application: A089127 | Product #001
Applicant: SANDOZ INC
Approved: Mar 2, 1987 | RLD: No | RS: No | Type: DISCN